FAERS Safety Report 17876067 (Version 1)
Quarter: 2020Q2

REPORT INFORMATION
  Report Type: Report from Study
  Country: CA (occurrence: CA)
  Receive Date: 20200609
  Receipt Date: 20200609
  Transmission Date: 20200714
  Serious: Yes (Other)
  Sender: FDA-Public Use
  Company Number: CA-PFIZER INC-2020221453

PATIENT
  Age: 62 Year
  Sex: Male

DRUGS (6)
  1. ETANERCEPT [Suspect]
     Active Substance: ETANERCEPT
     Dosage: 50 MG 1 EVERY 1 WEEKS
     Route: 058
  2. LEFLUNOMIDE. [Suspect]
     Active Substance: LEFLUNOMIDE
     Route: 065
  3. VOLTAREN EMULGEL BACK + MUSCLE PAIN [Suspect]
     Active Substance: DICLOFENAC DIETHYLAMINE
     Route: 065
  4. ETANERCEPT [Suspect]
     Active Substance: ETANERCEPT
     Indication: RHEUMATOID ARTHRITIS
     Dosage: 50 MG 1 EVERY 1 WEEKS
     Route: 058
  5. ETANERCEPT [Suspect]
     Active Substance: ETANERCEPT
     Dosage: 50 MG 1 EVERY 1 WEEKS
     Route: 058
  6. METHOTREXATE SODIUM. [Suspect]
     Active Substance: METHOTREXATE SODIUM
     Dosage: 25 MG 1 EVERY 1 WEEKS
     Route: 065

REACTIONS (12)
  - Therapeutic product effect incomplete [Unknown]
  - Influenza [Unknown]
  - Pain [Unknown]
  - Injection site pain [Unknown]
  - Mobility decreased [Unknown]
  - Gait disturbance [Unknown]
  - Muscle spasms [Unknown]
  - Pneumonia [Unknown]
  - Arthralgia [Unknown]
  - C-reactive protein increased [Unknown]
  - Nasopharyngitis [Unknown]
  - Chest pain [Unknown]
